FAERS Safety Report 4889642-7 (Version None)
Quarter: 2006Q1

REPORT INFORMATION
  Report Type: 
  Country: None (occurrence: None)
  Receive Date: 20060124
  Receipt Date: 20060118
  Transmission Date: 20060701
  Serious: Yes (Hospitalization)
  Sender: FDA-Public Use
  Company Number: JP-JPN-A200600239

PATIENT
  Age: 56 Year
  Sex: Male

DRUGS (5)
  1. EPIVIR [Suspect]
     Indication: ACQUIRED IMMUNODEFICIENCY SYNDROME
     Route: 048
     Dates: start: 20051221, end: 20051230
  2. STOCRIN [Suspect]
     Indication: ACQUIRED IMMUNODEFICIENCY SYNDROME
     Route: 048
     Dates: start: 20051221, end: 20051227
  3. VIREAD [Suspect]
     Indication: ACQUIRED IMMUNODEFICIENCY SYNDROME
     Route: 048
     Dates: start: 20051221, end: 20051230
  4. COTRIM [Concomitant]
     Route: 048
     Dates: start: 20051221
  5. DIFLUCAN [Concomitant]
     Route: 065
     Dates: start: 20051221

REACTIONS (3)
  - DEPRESSED LEVEL OF CONSCIOUSNESS [None]
  - LISTLESS [None]
  - RENAL DISORDER [None]
